FAERS Safety Report 16053883 (Version 3)
Quarter: 2019Q2

REPORT INFORMATION
  Report Type: Report from Study
  Country: US (occurrence: US)
  Receive Date: 20190308
  Receipt Date: 20190506
  Transmission Date: 20190711
  Serious: Yes (Hospitalization)
  Sender: FDA-Public Use
  Company Number: US-ACTELION-A-NJ2018-165643

PATIENT
  Age: 73 Year
  Sex: Female
  Weight: 54.42 kg

DRUGS (7)
  1. UPTRAVI [Suspect]
     Active Substance: SELEXIPAG
     Indication: PULMONARY HYPERTENSION
     Dosage: 2400 MCG, BID (800MCG BID, 1600MCG BID)
     Route: 048
  2. UPTRAVI [Suspect]
     Active Substance: SELEXIPAG
     Dosage: 1400 MCG, BID
     Route: 048
  3. LETAIRIS [Concomitant]
     Active Substance: AMBRISENTAN
  4. UPTRAVI [Suspect]
     Active Substance: SELEXIPAG
     Dosage: 1600 MCG, BID
     Route: 048
  5. UPTRAVI [Suspect]
     Active Substance: SELEXIPAG
     Dosage: 1200 MCG, BID
     Route: 048
  6. WARFARIN [Concomitant]
     Active Substance: WARFARIN
  7. REVATIO [Concomitant]
     Active Substance: SILDENAFIL CITRATE

REACTIONS (17)
  - Hypotension [Unknown]
  - Dizziness postural [Unknown]
  - Lung infection [Unknown]
  - Dizziness [Unknown]
  - Limb injury [Unknown]
  - Anxiety [Unknown]
  - Influenza like illness [Unknown]
  - Headache [Unknown]
  - Ligament sprain [Unknown]
  - Nervousness [Unknown]
  - Accidental overdose [Unknown]
  - Nausea [Recovered/Resolved]
  - Oxygen saturation decreased [Unknown]
  - Pericardial effusion [Unknown]
  - Fall [Unknown]
  - Pneumonia [Unknown]
  - Asthenia [Unknown]

NARRATIVE: CASE EVENT DATE: 20181102
